FAERS Safety Report 4314490-6 (Version None)
Quarter: 2004Q1

REPORT INFORMATION
  Report Type: 
  Country: None (occurrence: None)
  Receive Date: 20040309
  Receipt Date: 20031209
  Transmission Date: 20041129
  Serious: Yes (Other)
  Sender: FDA-Public Use
  Company Number: PHHO2003BR15959

PATIENT
  Age: 59 Year
  Sex: Female
  Weight: 80 kg

DRUGS (2)
  1. CODATEN [Suspect]
     Indication: BACK PAIN
     Route: 048
  2. LEVOTHYROXINE SODIUM [Concomitant]
     Route: 048

REACTIONS (11)
  - ANXIETY [None]
  - CHILLS [None]
  - DYSPNOEA [None]
  - HAEMATOCHEZIA [None]
  - HEADACHE [None]
  - HYPERHIDROSIS [None]
  - HYPERTENSION [None]
  - MALAISE [None]
  - NAUSEA [None]
  - RASH [None]
  - VOMITING [None]
